FAERS Safety Report 5087374-6 (Version None)
Quarter: 2006Q3

REPORT INFORMATION
  Report Type: 
  Country: None (occurrence: None)
  Receive Date: 20060824
  Receipt Date: 20060814
  Transmission Date: 20061208
  Serious: Yes (Other)
  Sender: FDA-Public Use
  Company Number: PHBS2006CH12161

PATIENT
  Age: 70 Year
  Sex: Male

DRUGS (4)
  1. DESFERAL [Suspect]
     Indication: HAEMOSIDEROSIS
     Dosage: 3000 MG/D
     Route: 042
     Dates: start: 20060328, end: 20060403
  2. EXJADE [Suspect]
     Indication: HAEMOSIDEROSIS
     Dosage: 1000 MG/D
     Route: 048
     Dates: start: 20060328, end: 20060403
  3. CORDARONE [Concomitant]
     Dosage: 200 MG/D
     Route: 065
  4. GUTRON [Concomitant]
     Dosage: 5 MG/D
     Route: 065

REACTIONS (6)
  - CARDIAC DISCOMFORT [None]
  - DYSPNOEA [None]
  - GENERALISED OEDEMA [None]
  - INCORRECT DOSE ADMINISTERED [None]
  - PULMONARY OEDEMA [None]
  - VISUAL ACUITY REDUCED [None]
